FAERS Safety Report 7987205-8 (Version None)
Quarter: 2011Q4

REPORT INFORMATION
  Report Type: 
  Country: None (occurrence: None)
  Receive Date: 20111216
  Receipt Date: 20111214
  Transmission Date: 20120403
  Serious: Yes (Other)
  Sender: FDA-Public Use
  Company Number: JP-PFIZER INC-2011301627

PATIENT
  Age: 76 Year
  Sex: Female

DRUGS (4)
  1. LYRICA [Suspect]
     Dosage: UNK
     Route: 048
  2. TELMISARTAN AND HYDROCHLOROTHIAZIDE [Suspect]
     Dosage: UNK
     Route: 048
  3. CRESTOR [Suspect]
     Route: 048
  4. ADVAIR DISKUS 100/50 [Concomitant]

REACTIONS (1)
  - STATUS ASTHMATICUS [None]
